FAERS Safety Report 4492519-2 (Version None)
Quarter: 2004Q4

REPORT INFORMATION
  Report Type: 
  Country: None (occurrence: None)
  Receive Date: 20041102
  Receipt Date: 20041102
  Transmission Date: 20050328
  Serious: Yes (Hospitalization)
  Sender: FDA-Public Use
  Company Number: None

PATIENT
  Age: 7 Year
  Sex: Female

DRUGS (7)
  1. MITOTANE [Suspect]
     Dosage: 500 MG TID ORAL
     Route: 048
  2. FAMOTIDINE [Concomitant]
  3. FLUDROCORTISONE ACETATE TAB [Concomitant]
  4. HYDROCORTISONE [Concomitant]
  5. MAGONATE [Concomitant]
  6. ALBERUTEROL MDI [Concomitant]
  7. CALCIUM CARBONATE [Concomitant]

REACTIONS (3)
  - ATAXIA [None]
  - HYPERKALAEMIA [None]
  - SOMNOLENCE [None]
